FAERS Safety Report 8043566-5 (Version None)
Quarter: 2012Q1

REPORT INFORMATION
  Report Type: 
  Country: None (occurrence: None)
  Receive Date: 20120112
  Receipt Date: 20120108
  Transmission Date: 20120608
  Serious: Yes (Hospitalization, Other)
  Sender: FDA-Public Use
  Company Number: PL-ROCHE-1028707

PATIENT
  Sex: Female

DRUGS (8)
  1. ALFADIOL [Concomitant]
     Route: 048
     Dates: start: 20110111
  2. DOXAZOSIN MESYLATE [Concomitant]
     Indication: HYPERTENSION
     Route: 048
     Dates: start: 20111022
  3. FUROSEMIDUM [Concomitant]
     Route: 048
     Dates: start: 20111022
  4. MIRCERA [Suspect]
     Indication: ANAEMIA
     Route: 042
     Dates: start: 20111128
  5. ASPIRIN [Concomitant]
     Route: 048
     Dates: start: 20111022
  6. AMLODIPINE [Concomitant]
     Indication: HYPERTENSION
     Route: 048
     Dates: start: 20111022
  7. SIMVASTATIN [Concomitant]
     Indication: HYPERCHOLESTEROLAEMIA
     Route: 048
     Dates: start: 20111022
  8. CALCIUM CARBONICUM [Concomitant]
     Indication: HYPERPHOSPHATAEMIA
     Route: 048
     Dates: start: 20111111

REACTIONS (2)
  - ANAEMIA [None]
  - PACKED RED BLOOD CELL TRANSFUSION [None]
